FAERS Safety Report 16743018 (Version 2)
Quarter: 2019Q3

REPORT INFORMATION
  Report Type: Spontaneous
  Country: US (occurrence: US)
  Receive Date: 20190827
  Receipt Date: 20190829
  Transmission Date: 20191005
  Serious: No
  Sender: FDA-Public Use
  Company Number: US-JNJFOC-20190828856

PATIENT
  Sex: Female

DRUGS (1)
  1. WOMENS ROGAINE UNSCENTED [Suspect]
     Active Substance: MINOXIDIL
     Indication: ALOPECIA
     Dosage: HALF OF CAPFUL
     Route: 061
     Dates: start: 201902

REACTIONS (3)
  - Malaise [Recovered/Resolved]
  - Application site reaction [Not Recovered/Not Resolved]
  - Dark circles under eyes [Recovered/Resolved]
